FAERS Safety Report 8772843 (Version 1)
Quarter: 2012Q4

REPORT INFORMATION
  Report Type: 
  Country: VE (occurrence: VE)
  Receive Date: 20120907
  Receipt Date: 20120907
  Transmission Date: 20130627
  Serious: Yes (Other)
  Sender: FDA-Public Use
  Company Number: VE-PFIZER INC-2012218963

PATIENT
  Sex: Male

DRUGS (1)
  1. CADUET [Suspect]
     Dosage: 5 mg, UNK
     Dates: start: 2012

REACTIONS (3)
  - Cerebrovascular accident [Unknown]
  - Blindness [Unknown]
  - Angina unstable [Unknown]
